FAERS Safety Report 4466067-X (Version None)
Quarter: 2004Q3

REPORT INFORMATION
  Report Type: 
  Country: None (occurrence: None)
  Receive Date: 20040930
  Receipt Date: 20040930
  Transmission Date: 20050211
  Serious: Yes (Hospitalization)
  Sender: FDA-Public Use
  Company Number: None

PATIENT
  Age: 27 Year
  Sex: Male
  Weight: 108.4 kg

DRUGS (3)
  1. LIDOCAINE [Suspect]
     Indication: ARTHROPATHY
     Dosage: SEE IMAGE
     Route: 014
     Dates: start: 20040928
  2. LIDOCAINE [Suspect]
     Indication: TENDERNESS
     Dosage: SEE IMAGE
     Route: 014
     Dates: start: 20040928
  3. IBUPROFEN [Concomitant]

REACTIONS (2)
  - COUGH [None]
  - OROPHARYNGEAL SWELLING [None]
